FAERS Safety Report 7074648 (Version 4)
Quarter: 2012Q4

REPORT INFORMATION
  Report Type: Report from Study
  Country: US (occurrence: US)
  Receive Date: 20090806
  Receipt Date: 20121217
  Transmission Date: 20130627
  Serious: Yes (Death, Hospitalization)
  Sender: FDA-Public Use
  Company Number: PHHO2009US09438

PATIENT
  Age: 42 Year
  Sex: Male

DRUGS (23)
  1. AFINITOR [Suspect]
     Indication: GLIOBLASTOMA MULTIFORME
     Dosage: UNK
     Route: 048
     Dates: start: 20090317, end: 20090726
  2. AVASTIN [Suspect]
     Indication: GLIOBLASTOMA MULTIFORME
     Dosage: UNK
     Route: 048
     Dates: start: 20090317, end: 20090721
  3. RADIATION [Concomitant]
  4. CHEMOTHERAPEUTICS NOS [Concomitant]
  5. PEPCID [Concomitant]
  6. ZOFRAN [Concomitant]
  7. TYLENOL [Concomitant]
  8. ALPRAZOLAM [Concomitant]
  9. DECADRON [Concomitant]
     Dosage: UNK
  10. REMERON [Concomitant]
  11. NORVASC [Concomitant]
  12. CEREFOLIN [Concomitant]
  13. DOCUSATE [Concomitant]
  14. REGULAR INSULIN NOVO NORDISK [Concomitant]
  15. METHYLPREDNISOLONE ACETATE [Concomitant]
  16. MIRTAZAPINE [Concomitant]
     Indication: DEPRESSION
  17. ENOXAPARIN SODIUM [Concomitant]
  18. AMLODIPINE BESYLATE [Concomitant]
  19. ESOMEPRAZOLE [Concomitant]
  20. FUROSEMIDE [Concomitant]
  21. SENNA [Concomitant]
     Dosage: UNK
  22. ALBUTEROL SULFATE [Concomitant]
  23. MORPHINE SULFATE [Concomitant]

REACTIONS (11)
  - Pulmonary embolism [Fatal]
  - Dyspnoea exertional [Fatal]
  - Dyspnoea [Fatal]
  - Hypoxia [Fatal]
  - Asthenia [Fatal]
  - Respiratory disorder [Fatal]
  - Deep vein thrombosis [Fatal]
  - Brain injury [Fatal]
  - Encephalopathy [Fatal]
  - Mental status changes [Fatal]
  - Aphasia [Fatal]
